FAERS Safety Report 11170154 (Version 1)
Quarter: 2015Q2

REPORT INFORMATION
  Report Type: Spontaneous
  Country: BR (occurrence: BR)
  Receive Date: 20150608
  Receipt Date: 20150608
  Transmission Date: 20150821
  Serious: Yes (Hospitalization, Other)
  Sender: FDA-Public Use
  Company Number: BR-JNJFOC-20150600786

PATIENT
  Age: 53 Year
  Sex: Female
  Weight: 78 kg

DRUGS (2)
  1. SIMPONI [Suspect]
     Active Substance: GOLIMUMAB
     Indication: RHEUMATOID ARTHRITIS
     Route: 058
     Dates: start: 2012, end: 201411
  2. SIMPONI [Suspect]
     Active Substance: GOLIMUMAB
     Indication: RHEUMATOID ARTHRITIS
     Route: 058
     Dates: start: 201505

REACTIONS (4)
  - Osteomyelitis [Recovered/Resolved]
  - Urinary tract infection bacterial [Recovering/Resolving]
  - Bone loss [Recovered/Resolved]
  - Bedridden [Not Recovered/Not Resolved]

NARRATIVE: CASE EVENT DATE: 201411
